FAERS Safety Report 16125054 (Version 3)
Quarter: 2019Q2

REPORT INFORMATION
  Report Type: Report from Study
  Country: DE (occurrence: DE)
  Receive Date: 20190327
  Receipt Date: 20190410
  Transmission Date: 20190711
  Serious: Yes (Hospitalization, Other)
  Sender: FDA-Public Use
  Company Number: DE-ASTRAZENECA-2019SE46156

PATIENT
  Age: 31490 Day
  Sex: Female
  Weight: 48 kg

DRUGS (2)
  1. AZD9150 [Suspect]
     Active Substance: DANVATIRSEN
     Indication: NEOPLASM MALIGNANT
     Route: 042
     Dates: start: 20190218, end: 20190311
  2. MEDI4736 [Suspect]
     Active Substance: DURVALUMAB
     Indication: NEOPLASM MALIGNANT
     Route: 042
     Dates: start: 20190225, end: 20190325

REACTIONS (2)
  - Drug-induced liver injury [Not Recovered/Not Resolved]
  - Cholestasis [Recovered/Resolved]

NARRATIVE: CASE EVENT DATE: 20190321
